FAERS Safety Report 10060493 (Version 1)
Quarter: 2014Q2

REPORT INFORMATION
  Report Type: Spontaneous
  Country: US (occurrence: US)
  Receive Date: 20140404
  Receipt Date: 20140404
  Transmission Date: 20141212
  Serious: Yes (Other)
  Sender: FDA-Public Use
  Company Number: US-ACTAVIS-2014-06133

PATIENT
  Age: 22 Year
  Sex: Female
  Weight: 88 kg

DRUGS (1)
  1. MINOCYCLINE HCL (WATSON LABORATORIES) [Suspect]
     Indication: ACNE
     Dosage: 100 MG, BID
     Route: 048
     Dates: start: 201312, end: 20140313

REACTIONS (4)
  - Blindness [Recovering/Resolving]
  - Papilloedema [Recovering/Resolving]
  - Visual field defect [Recovering/Resolving]
  - Nervous system disorder [Recovering/Resolving]
